FAERS Safety Report 13041849 (Version 1)
Quarter: 2016Q4

REPORT INFORMATION
  Report Type: Spontaneous
  Country: US (occurrence: US)
  Receive Date: 20161219
  Receipt Date: 20161219
  Transmission Date: 20170207
  Serious: No
  Sender: FDA-Public Use
  Company Number: US-ROCHE-1064100

PATIENT
  Sex: Male
  Weight: 53.12 kg

DRUGS (3)
  1. HYDROCORTISONE. [Concomitant]
     Active Substance: HYDROCORTISONE
     Route: 048
  2. ZELBORAF [Suspect]
     Active Substance: VEMURAFENIB
     Indication: MALIGNANT MELANOMA
     Route: 048
     Dates: start: 20120421
  3. FLUDROCORTISONE [Concomitant]
     Active Substance: FLUDROCORTISONE
     Dosage: DAILY DOSE
     Route: 048

REACTIONS (5)
  - Alopecia [Unknown]
  - Fatigue [Unknown]
  - Visual impairment [Unknown]
  - Dysgeusia [Unknown]
  - Dry mouth [Not Recovered/Not Resolved]
